FAERS Safety Report 6914388-0 (Version None)
Quarter: 2010Q3

REPORT INFORMATION
  Report Type: 
  Country: None (occurrence: None)
  Receive Date: 20100805
  Receipt Date: 20100805
  Transmission Date: 20110219
  Serious: No
  Sender: FDA-Public Use
  Company Number: None

PATIENT
  Sex: Female
  Weight: 54.4316 kg

DRUGS (2)
  1. NEXIUM [Suspect]
     Indication: CHOLECYSTECTOMY
     Dosage: 1/DAY DAILY
     Dates: start: 20100301, end: 20100714
  2. NEXIUM [Suspect]
     Indication: IRRITABLE BOWEL SYNDROME
     Dosage: 1/DAY DAILY
     Dates: start: 20100301, end: 20100714

REACTIONS (7)
  - ABDOMINAL DISTENSION [None]
  - ALOPECIA [None]
  - AMNESIA [None]
  - CONFUSIONAL STATE [None]
  - CONSTIPATION [None]
  - PANIC REACTION [None]
  - PRODUCT QUALITY ISSUE [None]
